FAERS Safety Report 5050192-9 (Version None)
Quarter: 2006Q3

REPORT INFORMATION
  Report Type: 
  Country: None (occurrence: None)
  Receive Date: 20060713
  Receipt Date: 20060705
  Transmission Date: 20061208
  Serious: Yes (Hospitalization, Other)
  Sender: FDA-Public Use
  Company Number: PHRM2006FR01977

PATIENT
  Age: 57 Year
  Sex: Male

DRUGS (5)
  1. LIORESAL [Suspect]
     Dosage: 7 DF, QD
     Route: 048
     Dates: start: 19960615
  2. LAROXYL [Suspect]
     Dosage: 10 G, QD
     Route: 048
     Dates: start: 20050615
  3. RIVOTRIL [Suspect]
     Dosage: 5 DF, QD
     Route: 048
     Dates: start: 20050615
  4. VASOBRAL [Suspect]
     Dosage: 11 DF, QD
     Route: 048
     Dates: start: 20040615
  5. COPAXONE [Suspect]
     Dosage: 20 MG, QD
     Route: 058
     Dates: start: 20040615

REACTIONS (3)
  - ACUTE PULMONARY OEDEMA [None]
  - HYPERTROPHIC CARDIOMYOPATHY [None]
  - LARYNGEAL CANCER [None]
